FAERS Safety Report 8389145-1 (Version None)
Quarter: 2012Q2

REPORT INFORMATION
  Report Type: 
  Country: None (occurrence: None)
  Receive Date: 20120528
  Receipt Date: 20120523
  Transmission Date: 20120825
  Serious: Yes (Death)
  Sender: FDA-Public Use
  Company Number: PHEH2012US010843

PATIENT
  Sex: Female
  Weight: 97.506 kg

DRUGS (1)
  1. EXTAVIA [Suspect]
     Indication: MULTIPLE SCLEROSIS
     Dosage: 0.25 UG, QOD
     Route: 058
     Dates: start: 20101210

REACTIONS (1)
  - DEATH [None]
